FAERS Safety Report 7232437-X (Version None)
Quarter: 2011Q1

REPORT INFORMATION
  Report Type: 
  Country: None (occurrence: None)
  Receive Date: 20110119
  Receipt Date: 20110114
  Transmission Date: 20110831
  Serious: No
  Sender: FDA-Public Use
  Company Number: US-PFIZER INC-2011010242

PATIENT
  Sex: Female
  Weight: 127 kg

DRUGS (2)
  1. PRISTIQ [Suspect]
     Indication: DEPRESSION
     Dosage: 50 MG, DAILY
     Route: 048
     Dates: start: 20110113
  2. IRON [Concomitant]
     Dosage: UNK

REACTIONS (2)
  - PAIN [None]
  - MUSCLE SPASMS [None]
